FAERS Safety Report 7791956-8 (Version None)
Quarter: 2011Q4

REPORT INFORMATION
  Report Type: 
  Country: None (occurrence: None)
  Receive Date: 20111003
  Receipt Date: 20110922
  Transmission Date: 20120403
  Serious: Yes (Life-Threatening, Hospitalization, Congenital Anomaly)
  Sender: FDA-Public Use
  Company Number: DE-PFIZER INC-2011222472

PATIENT
  Sex: Male
  Weight: 3.45 kg

DRUGS (5)
  1. SERTRALINE HYDROCHLORIDE [Suspect]
     Indication: DEPRESSION
     Dosage: 150 MG, DAILY
     Route: 064
     Dates: start: 20100512, end: 20110106
  2. FOL 400 [Concomitant]
     Indication: PROPHYLAXIS OF NEURAL TUBE DEFECT
     Dosage: 0.4 MG, 1X/DAY
     Route: 064
     Dates: start: 20100327, end: 20100903
  3. THYRONAJOD [Concomitant]
     Dosage: 150UG DAILY
     Route: 064
     Dates: end: 20110106
  4. THYRONAJOD [Concomitant]
     Indication: HYPOTHYROIDISM
     Dosage: 25 UG, 2X/DAY
     Route: 064
     Dates: start: 20100327
  5. PROMETHAZINE [Suspect]
     Indication: DEPRESSION
     Dosage: 30 MG, 2X/DAY
     Route: 064
     Dates: start: 20100327, end: 20110106

REACTIONS (3)
  - NEONATAL RESPIRATORY DISTRESS SYNDROME [None]
  - MATERNAL EXPOSURE DURING PREGNANCY [None]
  - FALLOT'S TETRALOGY [None]
